FAERS Safety Report 8204629-4 (Version None)
Quarter: 2012Q1

REPORT INFORMATION
  Report Type: 
  Country: None (occurrence: None)
  Receive Date: 20120313
  Receipt Date: 20120309
  Transmission Date: 20120608
  Serious: Yes (Other)
  Sender: FDA-Public Use
  Company Number: FR-ELI_LILLY_AND_COMPANY-FR200910003010

PATIENT
  Age: 72 Year
  Sex: Male

DRUGS (4)
  1. VITAMIN B-12 [Concomitant]
     Indication: SUPPLEMENTATION THERAPY
     Dosage: UNK, UNKNOWN
     Route: 065
     Dates: start: 20080301
  2. CORTICOSTEROIDS [Concomitant]
     Indication: SUPPLEMENTATION THERAPY
     Dates: start: 20090301
  3. ALIMTA [Suspect]
     Indication: NON-SMALL CELL LUNG CANCER
     Dosage: 500 MG/M2,
     Route: 065
     Dates: start: 20080301
  4. FOLIC ACID [Concomitant]
     Indication: SUPPLEMENTATION THERAPY
     Dosage: UNK, UNKNOWN
     Route: 065
     Dates: start: 20080301

REACTIONS (2)
  - RASH ERYTHEMATOUS [None]
  - INTERSTITIAL LUNG DISEASE [None]
